FAERS Safety Report 10325214 (Version 2)
Quarter: 2015Q1

REPORT INFORMATION
  Report Type: Other
  Country: US (occurrence: US)
  Receive Date: 20140720
  Receipt Date: 20150129
  Transmission Date: 20150720
  Serious: Yes (Hospitalization, Other)
  Sender: FDA-Public Use
  Company Number: US-GSKPPD-2014GSK022564

PATIENT
  Age: 60 Year
  Sex: Female

DRUGS (6)
  1. HYDROCHLOROTHIAZIDE. [Concomitant]
     Active Substance: HYDROCHLOROTHIAZIDE
     Dates: end: 20040821
  2. CLONIDINE. [Concomitant]
     Active Substance: CLONIDINE
     Dates: end: 200408
  3. LASIX [Concomitant]
     Active Substance: FUROSEMIDE
     Dates: end: 200408
  4. AVANDIA [Suspect]
     Active Substance: ROSIGLITAZONE MALEATE
     Indication: DIABETES MELLITUS
     Dosage: AVANDIA WAS NOT LISTED AMONG THE PATIENT^S RECORDS REVIEWED.
     Route: 048
  5. ASPIRIN. [Concomitant]
     Active Substance: ASPIRIN
  6. ZAROXOLYN [Concomitant]
     Active Substance: METOLAZONE
     Dates: end: 200408

REACTIONS (2)
  - Cardiac failure congestive [Unknown]
  - Hypertensive heart disease [Recovered/Resolved]

NARRATIVE: CASE EVENT DATE: 20040820
